FAERS Safety Report 12619542 (Version 3)
Quarter: 2016Q3

REPORT INFORMATION
  Report Type: Spontaneous
  Country: US (occurrence: US)
  Receive Date: 20160803
  Receipt Date: 20160921
  Transmission Date: 20161109
  Serious: Yes (Life-Threatening, Hospitalization)
  Sender: FDA-Public Use
  Company Number: US-JNJFOC-20160800721

PATIENT
  Age: 13 Year
  Sex: Female
  Weight: 38.56 kg

DRUGS (2)
  1. REMICADE [Suspect]
     Active Substance: INFLIXIMAB
     Indication: CROHN^S DISEASE
     Dosage: 2ND LOADING DOSE
     Route: 042
     Dates: start: 20160627
  2. REMICADE [Suspect]
     Active Substance: INFLIXIMAB
     Indication: CROHN^S DISEASE
     Dosage: 1ST LOADING DOSE
     Route: 042
     Dates: start: 20160613

REACTIONS (3)
  - Lupus pneumonitis [Recovered/Resolved]
  - Drug specific antibody present [Unknown]
  - Leukopenia [Unknown]

NARRATIVE: CASE EVENT DATE: 20160715
